FAERS Safety Report 8600552-1 (Version None)
Quarter: 2012Q3

REPORT INFORMATION
  Report Type: 
  Country: None (occurrence: None)
  Receive Date: 20120808
  Receipt Date: 20120808
  Transmission Date: 20120928
  Serious: Yes (Disabling)
  Sender: FDA-Public Use
  Company Number: None

PATIENT
  Sex: Female
  Weight: 97.5234 kg

DRUGS (2)
  1. HALDOL [Suspect]
     Indication: PSYCHOTIC DISORDER
     Dosage: 25 MG EVERY 2 WEEKS BUTT : 50MG EVERY 2 WEEKS BUTT
     Dates: start: 20080501, end: 20090201
  2. HALDOL [Suspect]
     Indication: DELUSION
     Dosage: 25 MG EVERY 2 WEEKS BUTT : 50MG EVERY 2 WEEKS BUTT
     Dates: start: 20080501, end: 20090201

REACTIONS (3)
  - PAIN IN EXTREMITY [None]
  - MUSCLE SPASMS [None]
  - DYSKINESIA [None]
